FAERS Safety Report 5091466-5 (Version None)
Quarter: 2006Q3

REPORT INFORMATION
  Report Type: 
  Country: None (occurrence: None)
  Receive Date: 20060829
  Receipt Date: 20060825
  Transmission Date: 20061208
  Serious: Yes (Hospitalization)
  Sender: FDA-Public Use
  Company Number: US-GLAXOSMITHKLINE-A0618072A

PATIENT
  Age: 54 Year
  Sex: Male

DRUGS (6)
  1. LAMICTAL [Suspect]
     Indication: PARTIAL SEIZURES
     Dosage: 150MG VARIABLE DOSE
     Route: 048
     Dates: start: 20060601
  2. SYNTHROID [Concomitant]
  3. PAXIL [Concomitant]
  4. CALCITRIOL [Concomitant]
  5. CALCIUM GLUCONATE [Concomitant]
  6. SIMVASTATIN [Concomitant]

REACTIONS (3)
  - DIPLOPIA [None]
  - DIZZINESS [None]
  - PETIT MAL EPILEPSY [None]
